FAERS Safety Report 8832228 (Version 1)
Quarter: 2012Q4

REPORT INFORMATION
  Report Type: 
  Country: AT (occurrence: AT)
  Receive Date: 20121009
  Receipt Date: 20121009
  Transmission Date: 20130627
  Serious: Yes (Other)
  Sender: FDA-Public Use
  Company Number: AT-BRISTOL-MYERS SQUIBB COMPANY-17009358

PATIENT
  Age: 52 Year
  Sex: Female

DRUGS (1)
  1. IPILIMUMAB [Suspect]
     Indication: METASTATIC MALIGNANT MELANOMA
     Dosage: All events occured after 2nd dosage except Intensive diarrhea that occured After 4th Dosage.
     Route: 042

REACTIONS (2)
  - VIth nerve paralysis [Recovering/Resolving]
  - Enterocolitis [Recovered/Resolved]
